FAERS Safety Report 7680914-X (Version None)
Quarter: 2011Q3

REPORT INFORMATION
  Report Type: 
  Country: None (occurrence: None)
  Receive Date: 20110812
  Receipt Date: 20110811
  Transmission Date: 20111222
  Serious: Yes (Other)
  Sender: FDA-Public Use
  Company Number: US-BRISTOL-MYERS SQUIBB COMPANY-15965536

PATIENT
  Age: 57 Year
  Sex: Male

DRUGS (2)
  1. ABILIFY [Suspect]
     Dates: start: 20110301
  2. WELLBUTRIN [Suspect]

REACTIONS (11)
  - ARTHRALGIA [None]
  - SOMNOLENCE [None]
  - HOT FLUSH [None]
  - FATIGUE [None]
  - HUNGER [None]
  - ABDOMINAL PAIN [None]
  - FLUID RETENTION [None]
  - LYMPHADENOPATHY [None]
  - HEADACHE [None]
  - SEDATION [None]
  - WEIGHT INCREASED [None]
